FAERS Safety Report 8856306 (Version 1)
Quarter: 2012Q4

REPORT INFORMATION
  Report Type: Spontaneous
  Country: AT (occurrence: None)
  Receive Date: 20121018
  Receipt Date: 20121018
  Transmission Date: 20130627
  Serious: Yes (Hospitalization)
  Sender: FDA-Public Use
  Company Number: DSA_59993_2012

PATIENT
  Age: 65 Year
  Sex: Female

DRUGS (6)
  1. RENITEC [Suspect]
     Indication: PRODUCT USED FOR UNKNOWN INDICATION
     Route: 048
  2. PREDNISONE (PREDNISONE) [Suspect]
     Indication: PRODUCT USED FOR UNKNOWN INDICATION
     Dosage: EVERY 4TH DAY
  3. SORTIS [Concomitant]
  4. TENORMIN [Concomitant]
  5. CELLCEPT [Concomitant]
  6. PROGRAF [Concomitant]

REACTIONS (5)
  - Arteriosclerosis [None]
  - Bundle branch block right [None]
  - Arterial rupture [None]
  - Thrombosis [None]
  - Brain natriuretic peptide increased [None]
